FAERS Safety Report 13545691 (Version 1)
Quarter: 2017Q2

REPORT INFORMATION
  Report Type: Spontaneous
  Country: CN (occurrence: CN)
  Receive Date: 20170515
  Receipt Date: 20170515
  Transmission Date: 20170830
  Serious: Yes (Death)
  Sender: FDA-Public Use
  Company Number: CN-BAYER-2017-089436

PATIENT
  Age: 78 Year
  Sex: Female
  Weight: 65 kg

DRUGS (7)
  1. PANANGIN [Concomitant]
     Active Substance: MAGNESIUM ASPARTATE\POTASSIUM ASPARTATE
     Indication: CARDIAC VALVE DISEASE
     Dosage: 30 ML, QD
     Route: 041
     Dates: start: 20170327, end: 20170327
  2. SODIUM CHLORIDE INJECTION [Concomitant]
     Active Substance: SODIUM CHLORIDE
     Dosage: 100 ML, QD
     Route: 041
     Dates: start: 20170327, end: 20170327
  3. GLUCOSE INJECTION [Concomitant]
     Dosage: 250 ML, QD
     Route: 041
     Dates: start: 20170327, end: 20170327
  4. AVELOX [Suspect]
     Active Substance: MOXIFLOXACIN HYDROCHLORIDE
     Indication: LUNG INFECTION
     Dosage: 0.4 G, QD
     Route: 041
     Dates: start: 20170327, end: 20170327
  5. INSULIN INJECTION [Concomitant]
     Active Substance: INSULIN NOS
     Indication: CARDIAC VALVE DISEASE
     Dosage: UNK
     Route: 041
     Dates: start: 20170327, end: 20170327
  6. CARNITOR [Concomitant]
     Active Substance: LEVOCARNITINE
     Indication: CARDIAC VALVE DISEASE
     Dosage: 2 G, QD
     Route: 041
     Dates: start: 20170327, end: 20170327
  7. MUCOSOLVAN [Concomitant]
     Active Substance: AMBROXOL HYDROCHLORIDE
     Indication: LUNG INFECTION
     Dosage: 30 MG, QD
     Route: 041
     Dates: start: 20170327, end: 20170327

REACTIONS (1)
  - Ventricular arrhythmia [Fatal]

NARRATIVE: CASE EVENT DATE: 20170327
